FAERS Safety Report 10697835 (Version 1)
Quarter: 2015Q1

REPORT INFORMATION
  Report Type: Spontaneous
  Country: US (occurrence: None)
  Receive Date: 20150107
  Receipt Date: 20150107
  Transmission Date: 20150721
  Serious: Yes (Hospitalization)
  Sender: FDA-Public Use
  Company Number: None

PATIENT
  Age: 68 Year
  Sex: Female
  Weight: 85 kg

DRUGS (1)
  1. GEMCITABINE HYDROCHLORIDE. [Suspect]
     Active Substance: GEMCITABINE HYDROCHLORIDE
     Dosage: INITIAL AES OCCURRED CYCLE 1 DAY 8 WHICH WAS GIVEN LAST ON 11/28/2014. PATIENT THEN READMITTED FOR GENERALIZED WEAKNESS AGAIN ON 12/7/2014.?
     Dates: end: 20141205

REACTIONS (13)
  - Asthenia [None]
  - Urinary tract infection [None]
  - Hypoglycaemia [None]
  - Influenza virus test positive [None]
  - Hypophagia [None]
  - Pyrexia [None]
  - Hypokalaemia [None]
  - Chest pain [None]
  - Hypocalcaemia [None]
  - Diarrhoea [None]
  - Supraventricular tachycardia [None]
  - Hypomagnesaemia [None]
  - Clostridium difficile infection [None]

NARRATIVE: CASE EVENT DATE: 20141127
